FAERS Safety Report 9975977 (Version 2)
Quarter: 2014Q1

REPORT INFORMATION
  Report Type: Spontaneous
  Country: US (occurrence: US)
  Receive Date: 20140306
  Receipt Date: 20140321
  Transmission Date: 20141002
  Serious: No
  Sender: FDA-Public Use
  Company Number: US-PFIZER INC-2014063719

PATIENT
  Age: 56 Year
  Sex: Female

DRUGS (12)
  1. XELJANZ [Suspect]
     Indication: RHEUMATOID ARTHRITIS
     Dosage: 5 MG, 2X/DAY
     Route: 048
     Dates: start: 20140206
  2. BENTYL [Concomitant]
     Dosage: UNK
  3. CYMBALTA [Concomitant]
     Dosage: UNK
  4. ENALAPRIL [Concomitant]
     Dosage: UNK
  5. NEXIUM [Concomitant]
     Dosage: UNK
  6. LASIX [Concomitant]
     Dosage: UNK
  7. PREDNISONE [Concomitant]
     Dosage: UNK
  8. SIMVASTATIN [Concomitant]
     Dosage: UNK
  9. FLEXERIL [Concomitant]
     Dosage: UNK
  10. FENTANYL [Concomitant]
     Dosage: UNK
  11. ALLEGRA [Concomitant]
     Dosage: UNK
  12. TRAZODONE [Concomitant]
     Dosage: UNK

REACTIONS (1)
  - Urinary tract infection [Unknown]
